FAERS Safety Report 9712578 (Version 2)
Quarter: 2014Q4

REPORT INFORMATION
  Report Type: Spontaneous
  Country: US (occurrence: US)
  Receive Date: 20131126
  Receipt Date: 20141205
  Transmission Date: 20150529
  Serious: No
  Sender: FDA-Public Use
  Company Number: US-BRISTOL-MYERS SQUIBB COMPANY-18894931

PATIENT
  Age: 66 Year
  Sex: Female
  Weight: 117.91 kg

DRUGS (17)
  1. BYDUREON [Suspect]
     Active Substance: EXENATIDE
     Indication: TYPE 2 DIABETES MELLITUS
     Route: 058
     Dates: start: 2011, end: 201405
  2. PROTONIX [Concomitant]
     Active Substance: PANTOPRAZOLE SODIUM
  3. SIMVASTATIN. [Concomitant]
     Active Substance: SIMVASTATIN
  4. ASPIRIN. [Concomitant]
     Active Substance: ASPIRIN
  5. FARXIGA [Concomitant]
     Active Substance: DAPAGLIFLOZIN PROPANEDIOL
  6. METFORMIN [Concomitant]
     Active Substance: METFORMIN HYDROCHLORIDE
  7. ABILIFY [Concomitant]
     Active Substance: ARIPIPRAZOLE
  8. MELOXICAM. [Concomitant]
     Active Substance: MELOXICAM
  9. TRAZODONE HYDROCHLORIDE. [Concomitant]
     Active Substance: TRAZODONE HYDROCHLORIDE
  10. GABAPENTIN. [Concomitant]
     Active Substance: GABAPENTIN
  11. OXYBUTYNIN [Concomitant]
     Active Substance: OXYBUTYNIN
  12. LOSARTAN [Concomitant]
     Active Substance: LOSARTAN
  13. TRICOR [Concomitant]
     Active Substance: FENOFIBRATE
  14. PLAVIX [Concomitant]
     Active Substance: CLOPIDOGREL BISULFATE
  15. FENOFIBRATE. [Concomitant]
     Active Substance: FENOFIBRATE
  16. PANTOPRAZOLE [Concomitant]
     Active Substance: PANTOPRAZOLE SODIUM
  17. LEXAPRO [Concomitant]
     Active Substance: ESCITALOPRAM OXALATE

REACTIONS (3)
  - Blood glucose increased [Unknown]
  - Drug dose omission [Unknown]
  - Drug dispensing error [Unknown]

NARRATIVE: CASE EVENT DATE: 201405
